FAERS Safety Report 8069387-5 (Version None)
Quarter: 2012Q1

REPORT INFORMATION
  Report Type: 
  Country: None (occurrence: None)
  Receive Date: 20120118
  Receipt Date: 20120111
  Transmission Date: 20120608
  Serious: Yes (Other)
  Sender: FDA-Public Use
  Company Number: JPI-P-016358

PATIENT
  Age: 42 Year
  Sex: Male
  Weight: 70.3075 kg

DRUGS (4)
  1. XYREM [Suspect]
     Indication: NARCOLEPSY
     Dosage: SEE IMAGE: ORAL
     Route: 048
     Dates: start: 20111004
  2. XYREM [Suspect]
     Indication: NARCOLEPSY
     Dosage: SEE IMAGE: ORAL
     Route: 048
     Dates: start: 20110722, end: 20110101
  3. XYREM [Suspect]
     Indication: NARCOLEPSY
     Dosage: SEE IMAGE: ORAL
     Route: 048
     Dates: start: 20110101, end: 20110101
  4. XYREM [Suspect]
     Indication: NARCOLEPSY
     Dosage: SEE IMAGE: ORAL
     Route: 048
     Dates: start: 20110101, end: 20110101

REACTIONS (6)
  - FALL [None]
  - VOMITING [None]
  - NAUSEA [None]
  - INSOMNIA [None]
  - GASTRIC ULCER [None]
  - SOMNAMBULISM [None]
